FAERS Safety Report 5084516-3 (Version None)
Quarter: 2006Q3

REPORT INFORMATION
  Report Type: 
  Country: None (occurrence: None)
  Receive Date: 20060814
  Receipt Date: 20060731
  Transmission Date: 20061208
  Serious: Yes (Disabling, Other)
  Sender: FDA-Public Use
  Company Number: DE200608000341

PATIENT
  Age: 64 Year
  Sex: Female
  Weight: 93 kg

DRUGS (2)
  1. GEMZAR [Suspect]
     Indication: PANCREATIC CARCINOMA
     Dosage: 1900 MG INTRAVENOUS
     Route: 042
     Dates: start: 20051107, end: 20060731
  2. IBUHEXAL (IBUPROFEN) [Concomitant]

REACTIONS (4)
  - BLOOD PRESSURE INCREASED [None]
  - CARDIAC FAILURE CHRONIC [None]
  - CARDIOMEGALY [None]
  - LEFT VENTRICULAR FAILURE [None]
